FAERS Safety Report 6004139-9 (Version None)
Quarter: 2008Q4

REPORT INFORMATION
  Report Type: 
  Country: None (occurrence: None)
  Receive Date: 20081215
  Receipt Date: 20081215
  Transmission Date: 20090506
  Serious: Yes (Life-Threatening, Hospitalization, Disabling)
  Sender: FDA-Public Use
  Company Number: None

PATIENT
  Age: 64 Year
  Sex: Male
  Weight: 136.0791 kg

DRUGS (1)
  1. OSP ORAL SOLUTION [Suspect]
     Indication: COLON OPERATION
     Dates: start: 20080625, end: 20080625

REACTIONS (8)
  - DEHYDRATION [None]
  - DIALYSIS [None]
  - MALAISE [None]
  - NERVOUS SYSTEM DISORDER [None]
  - POST PROCEDURAL COMPLICATION [None]
  - RENAL DISORDER [None]
  - RENAL FAILURE ACUTE [None]
  - RESPIRATORY FAILURE [None]
